FAERS Safety Report 5070854-7 (Version None)
Quarter: 2006Q3

REPORT INFORMATION
  Report Type: 
  Country: None (occurrence: None)
  Receive Date: 20060804
  Receipt Date: 20060519
  Transmission Date: 20061208
  Serious: No
  Sender: FDA-Public Use
  Company Number: US-GLAXOSMITHKLINE-A0606292A

PATIENT
  Age: 42 Year
  Sex: Female

DRUGS (1)
  1. NICORETTE (MINT) [Suspect]

REACTIONS (4)
  - ANOREXIA [None]
  - DIARRHOEA [None]
  - DIZZINESS [None]
  - NAUSEA [None]
